FAERS Safety Report 8833080 (Version 1)
Quarter: 2012Q4

REPORT INFORMATION
  Report Type: Spontaneous
  Country: JP (occurrence: None)
  Receive Date: 20121005
  Receipt Date: 20121005
  Transmission Date: 20130627
  Serious: Yes (Death, Hospitalization)
  Sender: FDA-Public Use
  Company Number: DSA_59919_2012

PATIENT
  Age: 73 Year
  Sex: Female

DRUGS (9)
  1. FLUOROURACIL [Suspect]
     Indication: COLON CANCER
     Dosage: df intravenous drip
     Route: 041
  2. FLUOROURACIL [Suspect]
     Indication: COLON CANCER
     Dosage: df intravenous drip
  3. CALCIUM FOLINATE [Suspect]
     Indication: COLON CANCER
     Dosage: df intravenous drip
     Route: 041
  4. CALCIUM FOLINATE [Suspect]
     Indication: COLON CANCER
     Dosage: df intravenous drip
  5. OXALIPLATIN (OXALIPLATIN) [Suspect]
     Indication: COLON CANCER
     Dosage: df intravenous drip
     Route: 041
  6. ERBITUX [Suspect]
     Indication: COLON CANCER
     Dosage: df intravenous drip
     Route: 041
  7. CAMPTO [Suspect]
     Dosage: df
  8. CAMPTO [Suspect]
     Dosage: df
  9. AVASTIN [Suspect]
     Indication: COLON CANCER
     Dosage: df intravenous drip
     Route: 041

REACTIONS (1)
  - Interstitial lung disease [None]
